FAERS Safety Report 10428704 (Version 1)
Quarter: 2014Q3

REPORT INFORMATION
  Report Type: Spontaneous
  Country: CN (occurrence: None)
  Receive Date: 20140902
  Receipt Date: 20140902
  Transmission Date: 20150326
  Serious: Yes (Other)
  Sender: FDA-Public Use
  Company Number: IMP_07853_2014

PATIENT
  Age: 49 Year
  Sex: Female

DRUGS (2)
  1. VALPROIC ACID (VALPROIC ACID) [Suspect]
     Active Substance: VALPROIC ACID
     Indication: PRODUCT USED FOR UNKNOWN INDICATION
  2. ZOTEPINE [Concomitant]
     Active Substance: ZOTEPINE

REACTIONS (7)
  - Hyperammonaemia [None]
  - Somnolence [None]
  - Drug intolerance [None]
  - Disturbance in attention [None]
  - Drug interaction [None]
  - Encephalopathy [None]
  - Gait disturbance [None]
